FAERS Safety Report 4362266-6 (Version None)
Quarter: 2004Q2

REPORT INFORMATION
  Report Type: 
  Country: None (occurrence: None)
  Receive Date: 20040517
  Receipt Date: 20040429
  Transmission Date: 20050107
  Serious: Yes (Hospitalization)
  Sender: FDA-Public Use
  Company Number: 196155

PATIENT
  Age: 52 Year
  Sex: Female
  Weight: 79.3795 kg

DRUGS (10)
  1. AVONEX ^BIOGEN^ [Suspect]
     Indication: MULTIPLE SCLEROSIS
     Dosage: 30 MCG QW IM
     Route: 030
     Dates: start: 20010101, end: 20030101
  2. AVONEX ^BIOGEN^ [Suspect]
     Indication: MULTIPLE SCLEROSIS
     Dosage: 30 MCG QW IM
     Route: 030
     Dates: start: 20040401
  3. PROZAC [Concomitant]
  4. LEXAPRO [Concomitant]
  5. MORPHINE [Concomitant]
  6. METHADONE HCL [Concomitant]
  7. ROBINUL [Concomitant]
  8. ASACOL [Concomitant]
  9. KLONOPIN [Concomitant]
  10. VALIUM [Concomitant]

REACTIONS (7)
  - ABDOMINAL PAIN [None]
  - CROHN'S DISEASE [None]
  - DIARRHOEA [None]
  - MULTIPLE SCLEROSIS [None]
  - OVARIAN MASS [None]
  - PULMONARY FIBROSIS [None]
  - UPPER RESPIRATORY TRACT INFECTION [None]
